FAERS Safety Report 21991723 (Version 1)
Quarter: 2023Q1

REPORT INFORMATION
  Report Type: Spontaneous
  Country: FR (occurrence: FR)
  Receive Date: 20230214
  Receipt Date: 20230214
  Transmission Date: 20230417
  Serious: Yes (Hospitalization, Congenital Anomaly, Other)
  Sender: FDA-Public Use
  Company Number: None

PATIENT
  Sex: Female
  Weight: 3.13 kg

DRUGS (1)
  1. KETOPROFEN [Suspect]
     Active Substance: KETOPROFEN
     Indication: Back pain
     Dosage: 3 DOSAGE FORM,QD,3 CAPSULES/DAY FOR ABOUT 1 WEEK
     Route: 064
     Dates: start: 202209

REACTIONS (5)
  - Right ventricular hypertrophy [Recovering/Resolving]
  - Hypoglycaemia neonatal [Recovered/Resolved]
  - Ductus arteriosus premature closure [Not Recovered/Not Resolved]
  - Hypothermia neonatal [Recovered/Resolved]
  - Foetal exposure during pregnancy [Unknown]

NARRATIVE: CASE EVENT DATE: 20221029
